FAERS Safety Report 4569600-2 (Version None)
Quarter: 2005Q1

REPORT INFORMATION
  Report Type: 
  Country: None (occurrence: None)
  Receive Date: 20050201
  Receipt Date: 20050120
  Transmission Date: 20050727
  Serious: Yes (Hospitalization)
  Sender: FDA-Public Use
  Company Number: 2005PK00155

PATIENT
  Age: 19 Year
  Sex: Female

DRUGS (2)
  1. SEROQUEL [Suspect]
     Dosage: 400 MG DAILY PO
     Route: 048
     Dates: start: 20030101
  2. EFFEXOR [Suspect]
     Dosage: 225 MG DAILY PO
     Route: 048
     Dates: start: 20030101

REACTIONS (3)
  - CONDITION AGGRAVATED [None]
  - MICTURITION DISORDER [None]
  - URINARY RETENTION [None]
